FAERS Safety Report 9566262 (Version 3)
Quarter: 2014Q2

REPORT INFORMATION
  Report Type: Report from Study
  Country: US (occurrence: US)
  Receive Date: 20130930
  Receipt Date: 20140409
  Transmission Date: 20141212
  Serious: Yes (Hospitalization)
  Sender: FDA-Public Use
  Company Number: US-US-EMD SERONO, INC.-7239723

PATIENT
  Sex: Female

DRUGS (2)
  1. REBIF [Suspect]
     Indication: MULTIPLE SCLEROSIS
     Route: 058
     Dates: start: 20130819, end: 20130831
  2. REBIF [Suspect]
     Dates: start: 20140325

REACTIONS (6)
  - Gastrointestinal obstruction [Recovering/Resolving]
  - Scar [Recovering/Resolving]
  - Oesophageal stenosis [Recovering/Resolving]
  - Liver disorder [Recovering/Resolving]
  - Supraventricular tachycardia [Recovering/Resolving]
  - Post procedural discharge [Recovering/Resolving]
